FAERS Safety Report 24970433 (Version 1)
Quarter: 2025Q1

REPORT INFORMATION
  Report Type: Spontaneous
  Country: CL (occurrence: CL)
  Receive Date: 20250214
  Receipt Date: 20250214
  Transmission Date: 20250409
  Serious: Yes (Hospitalization, Other)
  Sender: Vantive US Healthcare
  Company Number: CL-VANTIVE-2025VAN000304

PATIENT
  Sex: Male

DRUGS (1)
  1. DIANEAL [Suspect]
     Active Substance: CALCIUM CHLORIDE\DEXTROSE\MAGNESIUM CHLORIDE\SODIUM CHLORIDE\SODIUM LACTATE
     Route: 033

REACTIONS (11)
  - Hypothermia [Unknown]
  - Tremor [Unknown]
  - Urinary retention [Unknown]
  - Peritonitis [Unknown]
  - Abdominal pain upper [Unknown]
  - Nausea [Unknown]
  - Pyrexia [Unknown]
  - Peritoneal effluent abnormal [Unknown]
  - Peritoneal cloudy effluent [Unknown]
  - Defaecation urgency [Unknown]
  - Product colour issue [Unknown]
